FAERS Safety Report 25630860 (Version 5)
Quarter: 2025Q4

REPORT INFORMATION
  Report Type: Report from Study
  Country: CA (occurrence: CA)
  Receive Date: 20250801
  Receipt Date: 20251224
  Transmission Date: 20260117
  Serious: Yes (Hospitalization)
  Sender: TEVA
  Company Number: CA-TEVA-VS-3302553

PATIENT
  Age: 28 Year
  Sex: Female

DRUGS (4)
  1. CINQAIR [Suspect]
     Active Substance: RESLIZUMAB
     Indication: Asthma
     Dosage: LAST INFUSION DATE: 2025-06-23
     Route: 042
  2. CINQAIR [Suspect]
     Active Substance: RESLIZUMAB
     Indication: Asthma
     Dosage: LAST INFUSION DATE: 2025-01-06
     Route: 042
     Dates: start: 20240828
  3. CINQAIR [Suspect]
     Active Substance: RESLIZUMAB
     Indication: Asthma
     Dosage: LAST INFUSION DATE: 2025-07-25
     Route: 042
  4. CINQAIR [Suspect]
     Active Substance: RESLIZUMAB
     Indication: Asthma
     Dosage: LAST INFUSION DATE: 2025-10-21
     Route: 042

REACTIONS (4)
  - Anal haemorrhage [Unknown]
  - Product dose omission issue [Unknown]
  - Malaise [Unknown]
  - Influenza [Unknown]

NARRATIVE: CASE EVENT DATE: 20250101
